FAERS Safety Report 19685503 (Version 1)
Quarter: 2021Q3

REPORT INFORMATION
  Report Type: Spontaneous
  Country: US (occurrence: US)
  Receive Date: 20210810
  Receipt Date: 20210810
  Transmission Date: 20211014
  Serious: Yes (Hospitalization, Other)
  Sender: FDA-Public Use
  Company Number: None

PATIENT
  Age: 66 Year
  Sex: Male
  Weight: 106.6 kg

DRUGS (7)
  1. ATENOLOL. [Concomitant]
     Active Substance: ATENOLOL
  2. GLIPIZIDE. [Concomitant]
     Active Substance: GLIPIZIDE
  3. METFORMIN [Concomitant]
     Active Substance: METFORMIN HYDROCHLORIDE
  4. BENAZEPRIL [Concomitant]
     Active Substance: BENAZEPRIL HYDROCHLORIDE
  5. ASPIRIN LOW DOSE [Concomitant]
     Active Substance: ASPIRIN
  6. MEN^S ONE A DAY OVER 50 [Concomitant]
  7. CHANTIX [Suspect]
     Active Substance: VARENICLINE TARTRATE
     Indication: SMOKING CESSATION THERAPY
     Dosage: ?          QUANTITY:5 MG MILLIGRAM(S);?
     Route: 048
     Dates: start: 20050101, end: 20210421

REACTIONS (14)
  - Pancreatitis [None]
  - Haemorrhage [None]
  - Myalgia [None]
  - Abdominal pain upper [None]
  - Breath sounds abnormal [None]
  - Contusion [None]
  - Abdominal distension [None]
  - Muscle spasms [None]
  - Abdominal discomfort [None]
  - Peripheral swelling [None]
  - Gastric disorder [None]
  - Glucose tolerance impaired [None]
  - Sluggishness [None]
  - Dyspepsia [None]

NARRATIVE: CASE EVENT DATE: 20060501
